FAERS Safety Report 22166917 (Version 1)
Quarter: 2023Q2

REPORT INFORMATION
  Report Type: Spontaneous
  Country: IN (occurrence: IN)
  Receive Date: 20230403
  Receipt Date: 20230403
  Transmission Date: 20230721
  Serious: Yes (Other)
  Sender: FDA-Public Use
  Company Number: IN-AMNEAL PHARMACEUTICALS-2023-AMRX-01044

PATIENT
  Age: 58 Year
  Sex: Female

DRUGS (2)
  1. FULVESTRANT [Suspect]
     Active Substance: FULVESTRANT
     Indication: Neoplasm recurrence
     Dosage: UNK
     Route: 065
  2. LETROZOLE [Concomitant]
     Active Substance: LETROZOLE
     Indication: Neoplasm recurrence
     Dosage: UNK
     Route: 065

REACTIONS (5)
  - Hepatic cirrhosis [Not Recovered/Not Resolved]
  - Portal hypertension [Not Recovered/Not Resolved]
  - Steatohepatitis [Not Recovered/Not Resolved]
  - Hepatic failure [Not Recovered/Not Resolved]
  - Varices oesophageal [Not Recovered/Not Resolved]
